FAERS Safety Report 21712656 (Version 3)
Quarter: 2023Q1

REPORT INFORMATION
  Report Type: Spontaneous
  Country: JP (occurrence: JP)
  Receive Date: 20221212
  Receipt Date: 20230102
  Transmission Date: 20230418
  Serious: Yes (Other)
  Sender: FDA-Public Use
  Company Number: JP-ORGANON-O2212JPN000024J

PATIENT
  Age: 81 Year
  Sex: Female

DRUGS (2)
  1. ALENDRONATE SODIUM [Suspect]
     Active Substance: ALENDRONATE SODIUM
     Dosage: UNK
     Route: 048
     Dates: end: 202207
  2. VIVIANT [Suspect]
     Active Substance: BAZEDOXIFENE
     Dosage: UNK
     Route: 048
     Dates: start: 202207

REACTIONS (2)
  - Renal impairment [Unknown]
  - Anaemia [Unknown]

NARRATIVE: CASE EVENT DATE: 20220201
